FAERS Safety Report 16242749 (Version 3)
Quarter: 2019Q2

REPORT INFORMATION
  Report Type: Spontaneous
  Country: PT (occurrence: PT)
  Receive Date: 20190426
  Receipt Date: 20190506
  Transmission Date: 20190711
  Serious: Yes (Death, Hospitalization, Other)
  Sender: FDA-Public Use
  Company Number: PT-ASTELLAS-2019US018146

PATIENT
  Age: 6 Year
  Sex: Male

DRUGS (6)
  1. MEROPENEM. [Suspect]
     Active Substance: MEROPENEM
     Indication: APPENDICITIS
     Dosage: UNK UNK, UNKNOWN FREQ.
     Route: 065
  2. CYTARABINE. [Suspect]
     Active Substance: CYTARABINE
     Indication: ACUTE MYELOID LEUKAEMIA
     Dosage: UNK UNK, UNKNOWN FREQ.
     Route: 065
  3. METRONIDAZOLE. [Suspect]
     Active Substance: METRONIDAZOLE
     Indication: APPENDICITIS
     Dosage: UNK UNK, UNKNOWN FREQ.
     Route: 065
  4. FLUDARABINE [Suspect]
     Active Substance: FLUDARABINE PHOSPHATE
     Indication: ACUTE MYELOID LEUKAEMIA
     Dosage: UNK UNK, UNKNOWN FREQ.
     Route: 065
  5. LEVOFLOXACIN. [Suspect]
     Active Substance: LEVOFLOXACIN
     Indication: PROPHYLAXIS
     Dosage: UNK UNK, UNKNOWN FREQ.
     Route: 065
  6. MICAFUNGIN. [Suspect]
     Active Substance: MICAFUNGIN SODIUM
     Indication: PROPHYLAXIS
     Dosage: UNK UNK, UNKNOWN FREQ.
     Route: 065

REACTIONS (6)
  - Infection in an immunocompromised host [Fatal]
  - Geotrichum infection [Fatal]
  - Appendicitis [Fatal]
  - Multiple organ dysfunction syndrome [Fatal]
  - Condition aggravated [Fatal]
  - Drug ineffective [Unknown]
